FAERS Safety Report 6066144-6 (Version None)
Quarter: 2009Q1

REPORT INFORMATION
  Report Type: 
  Country: None (occurrence: None)
  Receive Date: 20090205
  Receipt Date: 20090127
  Transmission Date: 20090719
  Serious: Yes (Hospitalization)
  Sender: FDA-Public Use
  Company Number: FR-WYE-G03002909

PATIENT
  Sex: Male

DRUGS (17)
  1. TAZOCILLINE [Suspect]
     Dosage: UNKNOWN
     Route: 042
     Dates: start: 20081219, end: 20081229
  2. DALACINE - INTRAMUSCULAR [Suspect]
     Dosage: 600 MG STRENGTH; FREQUENCY UNSPECIFIED
     Route: 030
     Dates: start: 20081219, end: 20081229
  3. CALCIPARINE [Concomitant]
     Dosage: UNKNOWN
  4. TRAMADOL HCL [Concomitant]
     Dosage: UNKNOWN
  5. DIFFU K [Concomitant]
     Dosage: UNKNOWN
     Route: 048
  6. COLCHIMAX [Concomitant]
     Dosage: UNKNOWN
     Route: 048
  7. FONZYLANE [Concomitant]
     Dosage: UNKNOWN
  8. HYPERIUM [Concomitant]
     Dosage: 1 MG STRENGTH; FREQUENCY UNSPECIFIED
     Route: 048
  9. INIPOMP [Concomitant]
     Dosage: 40 MG STRENGTH; FREQUENCY UNSPECIFIED
     Route: 048
  10. IPRATROPIUM BROMIDE [Concomitant]
     Dosage: UNKNOWN
  11. ISOPTIN - SLOW RELEASE [Concomitant]
     Dosage: UNKNOWN
     Route: 048
  12. LASILIX [Concomitant]
     Dosage: 40 MG STRENGTH; FREQUENCY UNSPECIFIED
     Route: 048
  13. INDAPAMIDE [Concomitant]
     Dosage: UNKNOWN
     Route: 048
  14. PYOSTACINE [Concomitant]
     Dosage: 205 MG STRENGTH; FREQUENCY UNSPECIFIED
     Route: 048
  15. SALBUTAMOL [Concomitant]
     Dosage: UNKNOWN
  16. STILNOX [Concomitant]
     Dosage: 10 MG STRENGTH; FREQUENCY UNSPECIFIED
     Route: 048
  17. CLAMOXYL [Suspect]
     Route: 048
     Dates: start: 20081229, end: 20081230

REACTIONS (3)
  - EOSINOPHILIA [None]
  - PRURITUS [None]
  - RASH MORBILLIFORM [None]
